FAERS Safety Report 23259872 (Version 2)
Quarter: 2023Q4

REPORT INFORMATION
  Report Type: Spontaneous
  Country: FR (occurrence: FR)
  Receive Date: 20231204
  Receipt Date: 20231227
  Transmission Date: 20240109
  Serious: Yes (Death)
  Sender: FDA-Public Use
  Company Number: None

PATIENT
  Age: 62 Year
  Sex: Male

DRUGS (21)
  1. MEDROL [Interacting]
     Active Substance: METHYLPREDNISOLONE
     Indication: Back pain
     Dosage: 48 MG, 1X/DAY
     Route: 048
     Dates: start: 20231013, end: 20231016
  2. MEDROL [Interacting]
     Active Substance: METHYLPREDNISOLONE
     Dosage: 32 MG, 1X/DAY
     Route: 048
     Dates: start: 20231017, end: 20231021
  3. MEDROL [Interacting]
     Active Substance: METHYLPREDNISOLONE
     Dosage: 16 MG, 1X/DAY
     Route: 048
     Dates: start: 20231022, end: 20231026
  4. KARDEGIC [Interacting]
     Active Substance: ASPIRIN DL-LYSINE
     Indication: Cardiovascular event prophylaxis
     Dosage: 1 DF, 1X/DAY
     Route: 048
     Dates: start: 2023
  5. ARIXTRA [Interacting]
     Active Substance: FONDAPARINUX SODIUM
     Indication: Infarction
     Dosage: FREQ:{TOTAL};1 DF TOTAL
     Route: 058
     Dates: start: 20231027
  6. NAPROXEN [Interacting]
     Active Substance: NAPROXEN
     Indication: Back pain
     Dosage: 550 MG, 1X/DAY
     Route: 048
     Dates: start: 20231013
  7. DICLOFENAC [Interacting]
     Active Substance: DICLOFENAC
     Indication: Back pain
     Dosage: 50 MG, 1X/DAY
     Route: 048
     Dates: start: 20231013
  8. HEPARIN SODIUM [Interacting]
     Active Substance: HEPARIN SODIUM
     Indication: Infarction
     Dosage: UNK
     Route: 042
     Dates: start: 20231027
  9. TICAGRELOR [Interacting]
     Active Substance: TICAGRELOR
     Indication: Infarction
     Dosage: 1 DF, SINGLE
     Route: 048
     Dates: start: 20231027, end: 20231027
  10. ROSUVASTATIN CALCIUM [Concomitant]
     Active Substance: ROSUVASTATIN CALCIUM
     Route: 048
  11. NITRENDIPINE [Concomitant]
     Active Substance: NITRENDIPINE
     Indication: Product used for unknown indication
     Dosage: 20 MG, 1X/DAY
     Route: 048
  12. NITRENDIPINE [Concomitant]
     Active Substance: NITRENDIPINE
     Dosage: 20 MG, QD, IN THE MORNING
     Route: 048
  13. DAPAGLIFLOZIN [Concomitant]
     Active Substance: DAPAGLIFLOZIN
     Indication: Product used for unknown indication
     Dosage: 10 MG, 1X/DAY
     Route: 048
  14. DAPAGLIFLOZIN [Concomitant]
     Active Substance: DAPAGLIFLOZIN
     Dosage: 10 MG, QD
     Route: 048
  15. HYDROCHLOROTHIAZIDE [Concomitant]
     Active Substance: HYDROCHLOROTHIAZIDE
     Indication: Product used for unknown indication
     Dosage: 12.5 MG, 1X/DAY
     Route: 048
  16. HYDROCHLOROTHIAZIDE [Concomitant]
     Active Substance: HYDROCHLOROTHIAZIDE
     Dosage: 12.5 MG, QD
     Route: 048
  17. METFORMIN HYDROCHLORIDE\SAXAGLIPTIN [Concomitant]
     Active Substance: METFORMIN HYDROCHLORIDE\SAXAGLIPTIN
     Indication: Product used for unknown indication
     Dosage: 2 DF, 1X/DAY
     Route: 048
  18. METFORMIN HYDROCHLORIDE\SAXAGLIPTIN [Concomitant]
     Active Substance: METFORMIN HYDROCHLORIDE\SAXAGLIPTIN
     Dosage: 2 DF, QD
     Route: 048
  19. CANDESARTAN CILEXETIL [Concomitant]
     Active Substance: CANDESARTAN CILEXETIL
     Indication: Product used for unknown indication
     Dosage: 32 MG, 1X/DAY
     Route: 048
  20. CANDESARTAN CILEXETIL [Concomitant]
     Active Substance: CANDESARTAN CILEXETIL
     Dosage: 32 MG, QD, 16MG IN THE EVENING
     Route: 048
  21. ACETAMINOPHEN\CAFFEINE [Concomitant]
     Active Substance: ACETAMINOPHEN\CAFFEINE
     Dosage: UNK

REACTIONS (4)
  - Drug interaction [Fatal]
  - Shock haemorrhagic [Fatal]
  - Gastroduodenal ulcer [Fatal]
  - Cardiac arrest [Fatal]

NARRATIVE: CASE EVENT DATE: 20231027
